FAERS Safety Report 15256744 (Version 1)
Quarter: 2018Q3

REPORT INFORMATION
  Report Type: Spontaneous
  Country: NP (occurrence: NP)
  Receive Date: 20180808
  Receipt Date: 20180808
  Transmission Date: 20181010
  Serious: Yes (Death)
  Sender: FDA-Public Use
  Company Number: PHHY2018NP066823

PATIENT
  Age: 70 Year
  Sex: Male

DRUGS (1)
  1. GLIVEC [Suspect]
     Active Substance: IMATINIB MESYLATE
     Indication: CHRONIC MYELOID LEUKAEMIA
     Dosage: 400 MG, UNK
     Route: 065

REACTIONS (1)
  - Death [Fatal]

NARRATIVE: CASE EVENT DATE: 201407
